FAERS Safety Report 6248161-6 (Version None)
Quarter: 2009Q2

REPORT INFORMATION
  Report Type: 
  Country: None (occurrence: None)
  Receive Date: 20090624
  Receipt Date: 20090624
  Transmission Date: 20091009
  Serious: Yes (Other)
  Sender: FDA-Public Use
  Company Number: None

PATIENT
  Age: 74 Year
  Sex: Female
  Weight: 65.7716 kg

DRUGS (1)
  1. ALLOPURINOL [Suspect]
     Indication: GOUT
     Dosage: 200MG DAILY BY MOUTH
     Route: 048
     Dates: start: 20090327, end: 20090505

REACTIONS (2)
  - DRUG HYPERSENSITIVITY [None]
  - RASH [None]
